FAERS Safety Report 9746028 (Version 1)
Quarter: 2013Q4

REPORT INFORMATION
  Report Type: Spontaneous
  Country: GB (occurrence: GB)
  Receive Date: 20131211
  Receipt Date: 20131211
  Transmission Date: 20140711
  Serious: Yes (Other)
  Sender: FDA-Public Use
  Company Number: ALCN2013GB006106

PATIENT
  Age: 71 Year
  Sex: Female

DRUGS (8)
  1. AZARGA [Suspect]
     Indication: GLAUCOMA
     Route: 047
  2. AZOPT [Suspect]
     Indication: GLAUCOMA
     Route: 047
  3. ALPHAGAN [Suspect]
     Indication: GLAUCOMA
     Route: 047
  4. COSOPT [Suspect]
     Indication: GLAUCOMA
     Dosage: 1 DF, BID
     Route: 047
  5. TIMOLOL [Suspect]
     Indication: GLAUCOMA
     Route: 047
  6. TRUSOPT [Suspect]
     Indication: GLAUCOMA
     Route: 047
  7. XALATAN [Suspect]
     Indication: GLAUCOMA
     Dosage: 1 DF, QD
     Route: 047
  8. AMITRIPTYLINE [Concomitant]
     Dosage: 10 MG, QD

REACTIONS (5)
  - Eye operation [Recovered/Resolved]
  - Glaucoma [Unknown]
  - Hypersensitivity [Unknown]
  - Intraocular pressure test abnormal [Unknown]
  - Drug ineffective [Unknown]
